FAERS Safety Report 17044226 (Version 5)
Quarter: 2020Q3

REPORT INFORMATION
  Report Type: Report from Study
  Country: US (occurrence: US)
  Receive Date: 20191118
  Receipt Date: 20200924
  Transmission Date: 20201102
  Serious: No
  Sender: FDA-Public Use
  Company Number: NVSC2019US039184

PATIENT
  Age: 68 Year
  Sex: Female

DRUGS (5)
  1. COSENTYX [Suspect]
     Active Substance: SECUKINUMAB
     Indication: PSORIASIS
     Dosage: 300 MG, Q4W INJECT 2 PENS
     Route: 058
     Dates: start: 20190829
  2. COSENTYX [Suspect]
     Active Substance: SECUKINUMAB
     Indication: PSORIATIC ARTHROPATHY
     Dosage: 300 MG, QMO
     Route: 058
     Dates: start: 201907
  3. VITAMINS NOS [Concomitant]
     Active Substance: VITAMINS
     Indication: PRODUCT USED FOR UNKNOWN INDICATION
     Route: 065
  4. COSENTYX [Suspect]
     Active Substance: SECUKINUMAB
     Dosage: 300 MG, Q4W INJECT 2 PENS
     Route: 058
  5. METHOTREXATE. [Suspect]
     Active Substance: METHOTREXATE
     Indication: PRODUCT USED FOR UNKNOWN INDICATION
     Dosage: UNK (INCREASED MTX TO 8 TABLETS WEEKLY)
     Route: 065

REACTIONS (13)
  - Stress [Unknown]
  - Pruritus [Unknown]
  - Sneezing [Recovered/Resolved]
  - Electrolyte imbalance [Unknown]
  - Meibomian gland dysfunction [Unknown]
  - Exostosis [Unknown]
  - Onychoclasis [Not Recovered/Not Resolved]
  - Inflammation [Unknown]
  - Nasal congestion [Recovered/Resolved]
  - Arthralgia [Unknown]
  - Red blood cell sedimentation rate increased [Not Recovered/Not Resolved]
  - Pain in extremity [Not Recovered/Not Resolved]
  - Arthralgia [Not Recovered/Not Resolved]

NARRATIVE: CASE EVENT DATE: 20200312
